FAERS Safety Report 20720629 (Version 1)
Quarter: 2022Q2

REPORT INFORMATION
  Report Type: Report from Study
  Country: US (occurrence: US)
  Receive Date: 20220418
  Receipt Date: 20220418
  Transmission Date: 20220720
  Serious: Yes (Other)
  Sender: FDA-Public Use
  Company Number: US-PFIZER INC-202200524125

PATIENT
  Age: 36 Year
  Sex: Male

DRUGS (5)
  1. FENTANYL CITRATE [Suspect]
     Active Substance: FENTANYL CITRATE
     Dosage: UNK
  2. MORPHINE SULFATE [Suspect]
     Active Substance: MORPHINE SULFATE
     Dosage: UNK
  3. HEROIN [Suspect]
     Active Substance: DIAMORPHINE
     Dosage: UNK
  4. COCAINE [Suspect]
     Active Substance: COCAINE
     Dosage: UNK
  5. BENZOYLECGONINE [Suspect]
     Active Substance: BENZOYLECGONINE
     Dosage: UNK

REACTIONS (4)
  - Drug abuse [Unknown]
  - Nystagmus [Unknown]
  - Pupillary reflex impaired [Unknown]
  - Miosis [Unknown]
